FAERS Safety Report 7362163-8 (Version None)
Quarter: 2011Q1

REPORT INFORMATION
  Report Type: 
  Country: None (occurrence: None)
  Receive Date: 20110315
  Receipt Date: 20110315
  Transmission Date: 20110831
  Serious: Yes (Other)
  Sender: FDA-Public Use
  Company Number: None

PATIENT
  Age: 25 Year
  Sex: Male
  Weight: 74.3899 kg

DRUGS (1)
  1. THORAZINE [Suspect]
     Indication: SCHIZOPHRENIA
     Dosage: 100MG TID PO
     Route: 048
     Dates: start: 20110228, end: 20110303

REACTIONS (4)
  - CHOLESTASIS [None]
  - ASPARTATE AMINOTRANSFERASE INCREASED [None]
  - ALANINE AMINOTRANSFERASE INCREASED [None]
  - BLOOD ALKALINE PHOSPHATASE INCREASED [None]
